FAERS Safety Report 8214881-7 (Version None)
Quarter: 2012Q1

REPORT INFORMATION
  Report Type: 
  Country: None (occurrence: None)
  Receive Date: 20120229
  Receipt Date: 20110726
  Transmission Date: 20120608
  Serious: Yes (Hospitalization)
  Sender: FDA-Public Use
  Company Number: PHHY2011US69013

PATIENT
  Age: 26 Year
  Sex: Female
  Weight: 70 kg

DRUGS (7)
  1. RAPAMUNE [Concomitant]
  2. PRAVASTATIN [Concomitant]
  3. PREDNISONE TAB [Concomitant]
  4. COREG [Concomitant]
  5. POTASSIUM CHLORIDE [Concomitant]
  6. NEORAL [Suspect]
     Indication: PROPHYLAXIS AGAINST TRANSPLANT REJECTION
  7. HYDROCHLOROTHIAZIDE [Concomitant]

REACTIONS (1)
  - URINARY TRACT INFECTION [None]
